FAERS Safety Report 6463879-8 (Version None)
Quarter: 2009Q4

REPORT INFORMATION
  Report Type: 
  Country: None (occurrence: None)
  Receive Date: 20091201
  Receipt Date: 20091130
  Transmission Date: 20100525
  Serious: No
  Sender: FDA-Public Use
  Company Number: US-ROXANE LABORATORIES, INC.-2009-RO-01133RO

PATIENT
  Sex: Male

DRUGS (2)
  1. CITALOPRAM HYDROBROMIDE [Suspect]
     Indication: ANXIETY
     Dosage: 9 MG
     Route: 048
     Dates: start: 20050701
  2. CITALOPRAM HYDROBROMIDE [Suspect]
     Indication: AUTISM

REACTIONS (1)
  - ANXIETY [None]
